FAERS Safety Report 24137260 (Version 3)
Quarter: 2025Q4

REPORT INFORMATION
  Report Type: Spontaneous
  Country: US (occurrence: US)
  Receive Date: 20240725
  Receipt Date: 20251013
  Transmission Date: 20260117
  Serious: Yes (Other)
  Sender: BAYER HEALTHCARE PHARMACEUTICALS INC.
  Company Number: US-BAYER-2024A107247

PATIENT
  Age: 36 Year
  Sex: Male

DRUGS (5)
  1. KOVALTRY [Suspect]
     Active Substance: ANTIHEMOPHILIC FACTOR, HUMAN RECOMBINANT
     Indication: Haemorrhage
     Dosage: 2 DF 1750 UNITS/3500 UNITS, INFUSION AS NEEDED
  2. KOVALTRY [Suspect]
     Active Substance: ANTIHEMOPHILIC FACTOR, HUMAN RECOMBINANT
     Indication: Haemorrhage
     Dosage: KOVALTRY 581/1171 UNITS/ INFUSE 1750/3500 UNITS PRN
     Route: 042
  3. KOVALTRY [Suspect]
     Active Substance: ANTIHEMOPHILIC FACTOR, HUMAN RECOMBINANT
     Indication: Haemorrhage
     Dosage: 1 DF; FACTOR
     Route: 042
  4. KOVALTRY [Suspect]
     Active Substance: ANTIHEMOPHILIC FACTOR, HUMAN RECOMBINANT
     Indication: Haemorrhage
     Dosage: KOVALTRY 538/1104 UN~INFUSED 1750/3500 UN IV
     Route: 042
  5. KOVALTRY [Suspect]
     Active Substance: ANTIHEMOPHILIC FACTOR, HUMAN RECOMBINANT
     Indication: Haemorrhage
     Dosage: 2 DF, FACTOR
     Route: 042
     Dates: start: 202510

REACTIONS (7)
  - Haemorrhage [Recovered/Resolved]
  - Haemarthrosis [Recovered/Resolved]
  - Peripheral swelling [None]
  - Paraesthesia [None]
  - Feeling hot [None]
  - Traumatic haemorrhage [Recovered/Resolved]
  - Limb injury [None]

NARRATIVE: CASE EVENT DATE: 20240713
